FAERS Safety Report 24078449 (Version 1)
Quarter: 2024Q3

REPORT INFORMATION
  Report Type: Spontaneous
  Country: CN (occurrence: CN)
  Receive Date: 20240711
  Receipt Date: 20240711
  Transmission Date: 20241016
  Serious: Yes (Life-Threatening, Hospitalization, Other)
  Sender: ASTELLAS
  Company Number: CN-ASTELLAS-2024US019219

PATIENT
  Age: 32 Year
  Sex: Male

DRUGS (6)
  1. TACROLIMUS [Interacting]
     Active Substance: TACROLIMUS
     Indication: Systemic lupus erythematosus
     Route: 048
     Dates: end: 202308
  2. TACROLIMUS [Interacting]
     Active Substance: TACROLIMUS
     Dosage: UNK UNK, UNKNOWN FREQ.
     Route: 065
     Dates: start: 202308, end: 202308
  3. NIRMATRELVIR\RITONAVIR [Interacting]
     Active Substance: NIRMATRELVIR\RITONAVIR
     Indication: COVID-19
     Dosage: 300 MG/100 MG, EVERY 12 HOURS
     Route: 065
     Dates: start: 20230812, end: 202308
  4. PHENYTOIN [Interacting]
     Active Substance: PHENYTOIN
     Indication: Immunosuppressant drug level increased
     Route: 065
     Dates: start: 2023, end: 2023
  5. PREDNISONE [Concomitant]
     Active Substance: PREDNISONE
     Indication: Systemic lupus erythematosus
     Dosage: 5 MG DAILY
     Route: 065
     Dates: end: 202308
  6. PREDNISONE [Concomitant]
     Active Substance: PREDNISONE
     Dosage: 5 MG DAILY (RESUMED)
     Route: 065
     Dates: start: 202308

REACTIONS (7)
  - Toxicity to various agents [Recovering/Resolving]
  - Nephropathy toxic [Recovering/Resolving]
  - Neurotoxicity [Recovering/Resolving]
  - COVID-19 [Recovering/Resolving]
  - Drug interaction [Unknown]
  - Drug interaction [Unknown]
  - Off label use [Unknown]

NARRATIVE: CASE EVENT DATE: 20230101
